FAERS Safety Report 20568182 (Version 1)
Quarter: 2022Q1

REPORT INFORMATION
  Report Type: Spontaneous
  Country: US (occurrence: US)
  Receive Date: 20220308
  Receipt Date: 20220308
  Transmission Date: 20220423
  Serious: Yes (Hospitalization, Other)
  Sender: FDA-Public Use
  Company Number: US-MYLANLABS-2022M1017418

PATIENT
  Age: 8 Month
  Sex: Male
  Weight: 11 kg

DRUGS (1)
  1. APIXABAN [Suspect]
     Active Substance: APIXABAN
     Indication: Product used for unknown indication
     Dosage: 3 DOSAGE FORM (INGESTION OF THREE 5MG TABLETS OF APIXABAN)
     Route: 048

REACTIONS (5)
  - Activated partial thromboplastin time prolonged [Recovered/Resolved]
  - International normalised ratio increased [Recovered/Resolved]
  - Anti factor X activity increased [Recovering/Resolving]
  - Accidental exposure to product by child [Recovering/Resolving]
  - Accidental overdose [Recovering/Resolving]
